FAERS Safety Report 9168531 (Version 1)
Quarter: 2013Q1

REPORT INFORMATION
  Report Type: Spontaneous
  Country: US (occurrence: None)
  Receive Date: 20130314
  Receipt Date: 20130314
  Transmission Date: 20140127
  Serious: Yes (Other)
  Sender: FDA-Public Use
  Company Number: None

PATIENT
  Age: 60 Year
  Sex: Female
  Weight: 61.24 kg

DRUGS (3)
  1. VIIBRYD 40MG FOREST PARMACEUTICALS [Suspect]
     Route: 048
     Dates: start: 20121212, end: 20130208
  2. ABILIFY [Concomitant]
  3. PRISTIQ [Concomitant]

REACTIONS (2)
  - Mania [None]
  - Blood pressure increased [None]
